FAERS Safety Report 6557041-8 (Version None)
Quarter: 2010Q1

REPORT INFORMATION
  Report Type: 
  Country: None (occurrence: None)
  Receive Date: 20100128
  Receipt Date: 20100125
  Transmission Date: 20100710
  Serious: Yes (Hospitalization)
  Sender: FDA-Public Use
  Company Number: US-MERCK-1001USA03133

PATIENT
  Age: 70 Year
  Sex: Female

DRUGS (1)
  1. FOSAMAX PLUS D [Suspect]
     Indication: OSTEOPOROSIS
     Route: 065

REACTIONS (5)
  - CARDIAC DISORDER [None]
  - EYE DISORDER [None]
  - PAIN IN JAW [None]
  - RENAL FAILURE [None]
  - TOOTH DISORDER [None]
